FAERS Safety Report 8537101-2 (Version None)
Quarter: 2012Q3

REPORT INFORMATION
  Report Type: 
  Country: None (occurrence: None)
  Receive Date: 20120725
  Receipt Date: 20120724
  Transmission Date: 20120928
  Serious: Yes (Hospitalization)
  Sender: FDA-Public Use
  Company Number: BR-BAYER-2012-073952

PATIENT
  Sex: Female

DRUGS (2)
  1. POLARAMINE [Concomitant]
     Indication: ALLERGY PROPHYLAXIS
  2. ULTRAVIST 150 [Suspect]
     Indication: COMPUTERISED TOMOGRAM
     Dosage: UNK
     Route: 042

REACTIONS (9)
  - HEADACHE [None]
  - LARYNGEAL OEDEMA [None]
  - DIZZINESS [None]
  - HYPOAESTHESIA [None]
  - SKIN PLAQUE [None]
  - COUGH [None]
  - DYSPNOEA [None]
  - VOMITING [None]
  - ABDOMINAL PAIN [None]
